FAERS Safety Report 20822049 (Version 1)
Quarter: 2022Q2

REPORT INFORMATION
  Report Type: Spontaneous
  Country: US (occurrence: None)
  Receive Date: 20220512
  Receipt Date: 20220512
  Transmission Date: 20220720
  Serious: Yes (Other)
  Sender: FDA-Public Use
  Company Number: None

PATIENT
  Age: 79 Year
  Sex: Male
  Weight: 64 kg

DRUGS (2)
  1. VIVITROL [Suspect]
     Active Substance: NALTREXONE
     Indication: Alcohol use disorder
  2. VIVITROL [Concomitant]
     Active Substance: NALTREXONE
     Dates: start: 20220419, end: 20220509

REACTIONS (3)
  - Oedema [None]
  - Weight increased [None]
  - Brain natriuretic peptide increased [None]
